FAERS Safety Report 9485983 (Version 1)
Quarter: 2013Q3

REPORT INFORMATION
  Report Type: Spontaneous
  Country: US (occurrence: None)
  Receive Date: 20130827
  Receipt Date: 20130827
  Transmission Date: 20140515
  Serious: No
  Sender: FDA-Public Use
  Company Number: None

PATIENT
  Age: 77 Year
  Sex: Female
  Weight: 122 kg

DRUGS (12)
  1. ELITEK [Suspect]
     Indication: HYPERURICAEMIA
     Route: 042
     Dates: start: 20130727, end: 20130727
  2. ACETAMINOPHEN [Concomitant]
  3. DIPHENHYDRAMINE [Concomitant]
  4. SOLU-CORTEF [Concomitant]
  5. CITALOPRAM [Concomitant]
  6. DILTIAZEM ER [Concomitant]
  7. FUROSEMIDE [Concomitant]
  8. HYDROCODONE ACETAMINOPHEN [Concomitant]
  9. NOVOLOG [Concomitant]
  10. METOPROLOL TARTRATE [Concomitant]
  11. THERA-M MULTIVITAMIN [Concomitant]
  12. POTASSIUM CHLORIDE [Concomitant]

REACTIONS (6)
  - Dyspnoea [None]
  - Flushing [None]
  - Asthenia [None]
  - Dyspepsia [None]
  - Chills [None]
  - Infusion related reaction [None]
